FAERS Safety Report 10583959 (Version 1)
Quarter: 2014Q4

REPORT INFORMATION
  Report Type: Spontaneous
  Country: US (occurrence: None)
  Receive Date: 20141113
  Receipt Date: 20141113
  Transmission Date: 20150529
  Serious: Yes (Other)
  Sender: FDA-Public Use
  Company Number: None

PATIENT
  Age: 59 Year
  Sex: Female
  Weight: 70.76 kg

DRUGS (2)
  1. BOTOX [Suspect]
     Active Substance: ONABOTULINUMTOXINA
     Indication: SKIN COSMETIC PROCEDURE
     Dosage: 6 CC  ONCE  GIVEN INTO/UNDER THE SKIN
     Route: 058
  2. BOTOX [Suspect]
     Active Substance: ONABOTULINUMTOXINA
     Indication: SKIN WRINKLING
     Dosage: 6 CC  ONCE  GIVEN INTO/UNDER THE SKIN
     Route: 058

REACTIONS (2)
  - Tachycardia [None]
  - Palpitations [None]

NARRATIVE: CASE EVENT DATE: 20141029
